FAERS Safety Report 17294117 (Version 6)
Quarter: 2022Q1

REPORT INFORMATION
  Report Type: Report from Study
  Country: US (occurrence: None)
  Receive Date: 20200121
  Receipt Date: 20220105
  Transmission Date: 20220423
  Serious: Yes (Hospitalization)
  Sender: FDA-Public Use
  Company Number: US-ROCHE-2521559

PATIENT
  Age: 44 Year
  Sex: Male
  Weight: 95.9 kg

DRUGS (59)
  1. VENETOCLAX [Suspect]
     Active Substance: VENETOCLAX
     Indication: Follicular lymphoma
     Dosage: DATE OF MOST RECENT DOSE OF VENETOCLAX (100 MG) PRIOR TO AE ONSET ON 26/DEC/2019
     Route: 048
     Dates: start: 20190618
  2. OBINUTUZUMAB [Suspect]
     Active Substance: OBINUTUZUMAB
     Indication: Follicular lymphoma
     Dosage: DATE OF MOST RECENT DOSE OF OBINUTUZUMAB PRIOR TO AE ONSET ON 26/DEC/2019 AAT 1000 MG
     Route: 042
     Dates: start: 20190618
  3. POLATUZUMAB VEDOTIN [Suspect]
     Active Substance: POLATUZUMAB VEDOTIN
     Indication: Follicular lymphoma
     Dosage: ON 05/NOV/2019, HE RECEIVED MOST RECENT DOSE OF POLATUZUMAB VEDOTIN (1.4 MG) PRIOR TO AE ONSET.
     Route: 042
     Dates: start: 20190618
  4. LEVOFLOXACIN [Concomitant]
     Active Substance: LEVOFLOXACIN
     Indication: COVID-19 pneumonia
     Dates: start: 20211003, end: 20211007
  5. OXYCODONE AND ACETAMINOPHEN [Concomitant]
     Active Substance: ACETAMINOPHEN\OXYCODONE HYDROCHLORIDE
     Indication: Pain
     Dates: start: 20190424
  6. ZOFRAN [Concomitant]
     Active Substance: ONDANSETRON HYDROCHLORIDE
     Indication: Nausea
     Dates: start: 20190424
  7. BENADRYL [Concomitant]
     Active Substance: DIPHENHYDRAMINE HYDROCHLORIDE
     Indication: Hypersensitivity
     Dates: start: 20190620
  8. CLARITIN [Concomitant]
     Active Substance: LORATADINE
     Indication: Nasal congestion
     Dates: start: 20190708
  9. IMODIUM [Concomitant]
     Active Substance: LOPERAMIDE HYDROCHLORIDE
     Indication: Diarrhoea
     Dates: start: 20190706
  10. AUGMENTIN [Concomitant]
     Active Substance: AMOXICILLIN\CLAVULANATE POTASSIUM
     Indication: Acute sinusitis
     Dates: start: 20190801
  11. AUGMENTIN [Concomitant]
     Active Substance: AMOXICILLIN\CLAVULANATE POTASSIUM
     Dates: start: 20191203, end: 20191210
  12. AUGMENTIN [Concomitant]
     Active Substance: AMOXICILLIN\CLAVULANATE POTASSIUM
     Dates: start: 20200130, end: 20200205
  13. ACETAMINOPHEN [Concomitant]
     Active Substance: ACETAMINOPHEN
     Indication: Pain
     Dates: start: 20190825
  14. ACETAMINOPHEN [Concomitant]
     Active Substance: ACETAMINOPHEN
     Dates: start: 20210930, end: 20211006
  15. ACETAMINOPHEN [Concomitant]
     Active Substance: ACETAMINOPHEN
     Route: 048
     Dates: start: 20191226, end: 20191226
  16. ACETAMINOPHEN [Concomitant]
     Active Substance: ACETAMINOPHEN
     Route: 048
     Dates: start: 20200220, end: 20200220
  17. ALLOPURINOL [Concomitant]
     Active Substance: ALLOPURINOL
     Indication: Hyperuricaemia
     Dates: start: 20190911
  18. ALLOPURINOL [Concomitant]
     Active Substance: ALLOPURINOL
     Dates: start: 20201030
  19. MUCINEX DM [Concomitant]
     Active Substance: DEXTROMETHORPHAN HYDROBROMIDE\GUAIFENESIN
     Indication: Sinus congestion
     Dates: start: 20190919
  20. SUDAFED [Concomitant]
     Active Substance: PSEUDOEPHEDRINE HYDROCHLORIDE
     Indication: Sinus congestion
     Dates: start: 20190919
  21. TYLENOL [Concomitant]
     Active Substance: ACETAMINOPHEN
     Indication: Headache
     Dates: start: 20190919
  22. TAMSULOSIN [Concomitant]
     Active Substance: TAMSULOSIN
     Indication: Ureterolithiasis
  23. PRIVIGEN [Concomitant]
     Active Substance: HUMAN IMMUNOGLOBULIN G
     Indication: Hypogammaglobulinaemia
     Dates: start: 20200219, end: 20200219
  24. PRIVIGEN [Concomitant]
     Active Substance: HUMAN IMMUNOGLOBULIN G
     Dates: start: 20200317, end: 20200317
  25. ZYRTEC (UNITED STATES) [Concomitant]
     Indication: Hypersensitivity
     Dates: start: 20200401, end: 20200405
  26. FLONASE [Concomitant]
     Active Substance: FLUTICASONE PROPIONATE
     Indication: Hypersensitivity
     Dates: start: 20200401, end: 20200405
  27. FLONASE [Concomitant]
     Active Substance: FLUTICASONE PROPIONATE
     Dates: start: 20191121, end: 20191202
  28. CEFUROXIME [Concomitant]
     Active Substance: CEFUROXIME
     Dates: start: 20200714, end: 20210129
  29. CEFUROXIME [Concomitant]
     Active Substance: CEFUROXIME
     Dates: start: 20201030
  30. POTASSIUM CITRATE [Concomitant]
     Active Substance: POTASSIUM CITRATE
     Dates: start: 20200714, end: 20210129
  31. POTASSIUM CITRATE [Concomitant]
     Active Substance: POTASSIUM CITRATE
     Dates: start: 20201030
  32. ACYCLOVIR [Concomitant]
     Active Substance: ACYCLOVIR
     Dates: start: 20150821, end: 20210129
  33. ACYCLOVIR [Concomitant]
     Active Substance: ACYCLOVIR
     Dates: start: 20201030
  34. PROMETHAZINE [Concomitant]
     Active Substance: PROMETHAZINE HYDROCHLORIDE
     Dates: start: 20211001, end: 20211006
  35. MAGNESIUM HYDROXIDE [Concomitant]
     Active Substance: MAGNESIUM HYDROXIDE
     Dates: start: 20210930, end: 20211006
  36. ONDANSETRON [Concomitant]
     Active Substance: ONDANSETRON
     Indication: COVID-19 pneumonia
     Dates: start: 20210930, end: 20210930
  37. ONDANSETRON [Concomitant]
     Active Substance: ONDANSETRON
     Dates: start: 20211001, end: 20211006
  38. KETOROLAC [Concomitant]
     Active Substance: KETOROLAC TROMETHAMINE
     Dates: start: 20210930, end: 20210930
  39. IOHEXOL [Concomitant]
     Active Substance: IOHEXOL
     Dates: start: 20210930, end: 20210930
  40. IOHEXOL [Concomitant]
     Active Substance: IOHEXOL
     Dates: start: 20211002, end: 20211002
  41. VANCOMYCIN [Concomitant]
     Active Substance: VANCOMYCIN
     Dates: start: 20210930, end: 20210930
  42. PIPERACILLIN SODIUM\TAZOBACTAM SODIUM [Concomitant]
     Active Substance: PIPERACILLIN SODIUM\TAZOBACTAM SODIUM
     Dates: start: 20210930, end: 20210930
  43. METFORMIN [Concomitant]
     Active Substance: METFORMIN HYDROCHLORIDE
     Indication: Diabetes mellitus
     Dates: start: 20210930, end: 20211006
  44. METFORMIN [Concomitant]
     Active Substance: METFORMIN HYDROCHLORIDE
     Dates: start: 20210208
  45. LOSARTAN [Concomitant]
     Active Substance: LOSARTAN
     Indication: Hypertension
     Dates: start: 20211001, end: 20211006
  46. LOSARTAN [Concomitant]
     Active Substance: LOSARTAN
     Dates: start: 20210208, end: 20211112
  47. ATORVASTATIN [Concomitant]
     Active Substance: ATORVASTATIN
     Indication: Blood cholesterol increased
     Dates: start: 20211001, end: 20211006
  48. ATORVASTATIN [Concomitant]
     Active Substance: ATORVASTATIN
     Dates: start: 20210208
  49. ENOXAPARIN [Concomitant]
     Active Substance: ENOXAPARIN
     Indication: COVID-19 pneumonia
     Dates: start: 20210930, end: 20211005
  50. IBUPROFEN [Concomitant]
     Active Substance: IBUPROFEN
     Indication: COVID-19 pneumonia
     Dates: start: 20211002, end: 20211003
  51. DEXAMETHASONE [Concomitant]
     Active Substance: DEXAMETHASONE
     Route: 048
     Dates: start: 20191226, end: 20191226
  52. DEXAMETHASONE [Concomitant]
     Active Substance: DEXAMETHASONE
     Route: 048
     Dates: start: 20200220, end: 20200220
  53. FAMOTIDINE [Concomitant]
     Active Substance: FAMOTIDINE
     Dates: start: 20191226, end: 20191226
  54. FAMOTIDINE [Concomitant]
     Active Substance: FAMOTIDINE
     Route: 042
     Dates: start: 20200220, end: 20200220
  55. CETIRIZINE [Concomitant]
     Active Substance: CETIRIZINE HYDROCHLORIDE
     Route: 048
     Dates: start: 20191226, end: 20191226
  56. CETIRIZINE [Concomitant]
     Active Substance: CETIRIZINE HYDROCHLORIDE
     Route: 048
     Dates: start: 20200220, end: 20200220
  57. ACETAMINOPHEN\HYDROCODONE [Concomitant]
     Active Substance: ACETAMINOPHEN\HYDROCODONE
  58. SODIUM CHLORIDE [Concomitant]
     Active Substance: SODIUM CHLORIDE
     Indication: COVID-19 pneumonia
     Dates: start: 20210930, end: 20210930
  59. BENZOCAINE-MENTHOL [Concomitant]
     Indication: COVID-19 pneumonia
     Dates: start: 20211001, end: 20211001

REACTIONS (2)
  - Retinal detachment [Not Recovered/Not Resolved]
  - Retinal tear [Not Recovered/Not Resolved]

NARRATIVE: CASE EVENT DATE: 20191227
